FAERS Safety Report 9254775 (Version 1)
Quarter: 2013Q2

REPORT INFORMATION
  Report Type: Spontaneous
  Country: US (occurrence: None)
  Receive Date: 20130422
  Receipt Date: 20130422
  Transmission Date: 20140414
  Serious: Yes (Hospitalization)
  Sender: FDA-Public Use
  Company Number: None

PATIENT
  Age: 61 Year
  Sex: Male
  Weight: 73.1 kg

DRUGS (1)
  1. CLOZAPINE [Suspect]
     Route: 048
     Dates: start: 20130212, end: 20130221

REACTIONS (2)
  - Constipation [None]
  - Productive cough [None]
